FAERS Safety Report 15997852 (Version 2)
Quarter: 2019Q1

REPORT INFORMATION
  Report Type: Spontaneous
  Country: IT (occurrence: IT)
  Receive Date: 20190222
  Receipt Date: 20190308
  Transmission Date: 20190418
  Serious: Yes (Other)
  Sender: FDA-Public Use
  Company Number: IT-BEH-2019099502

PATIENT
  Sex: Male
  Weight: 50 kg

DRUGS (1)
  1. AFSTYLA ANTIHEMOPHILIC FACTOR (RECOMBINANT), SINGLE CHAIN [Suspect]
     Active Substance: ANTIHEMOPHILIC FACTOR, HUMAN RECOMBINANT
     Indication: HAEMOPHILIA
     Dosage: 4000 IU, QOD
     Route: 042
     Dates: start: 201802

REACTIONS (1)
  - Anti factor VIII antibody positive [Unknown]

NARRATIVE: CASE EVENT DATE: 201803
